FAERS Safety Report 23220641 (Version 1)
Quarter: 2023Q4

REPORT INFORMATION
  Report Type: Spontaneous
  Country: US (occurrence: US)
  Receive Date: 20231123
  Receipt Date: 20231123
  Transmission Date: 20240109
  Serious: No
  Sender: FDA-Public Use
  Company Number: US-BIOGEN-2020BI00860348

PATIENT
  Sex: Female

DRUGS (19)
  1. TECFIDERA [Suspect]
     Active Substance: DIMETHYL FUMARATE
     Indication: Multiple sclerosis
     Route: 050
     Dates: start: 201410
  2. TECFIDERA [Suspect]
     Active Substance: DIMETHYL FUMARATE
     Route: 050
     Dates: start: 2014
  3. TECFIDERA [Suspect]
     Active Substance: DIMETHYL FUMARATE
     Route: 050
     Dates: start: 2014
  4. ALENDRONATE [Concomitant]
     Active Substance: ALENDRONATE SODIUM
     Route: 050
  5. BACLOFEN [Concomitant]
     Active Substance: BACLOFEN
     Route: 050
  6. FOLIC ACID [Concomitant]
     Active Substance: FOLIC ACID
     Route: 050
  7. IBANDRONATE SODIUM [Concomitant]
     Active Substance: IBANDRONATE SODIUM
     Route: 050
  8. LEVOTHYROXINE SODIUM [Concomitant]
     Active Substance: LEVOTHYROXINE SODIUM
     Dosage: 1 TABLET EMPTY STOMACH IN MORNING ORALLY ONCE A DAY
     Route: 050
  9. LYRICA [Concomitant]
     Active Substance: PREGABALIN
     Dosage: 6 AM, 12 NOON, 6 PM AND BED TIME
     Route: 050
  10. OXCARBAZEPINE [Concomitant]
     Active Substance: OXCARBAZEPINE
     Dosage: 6 AM, 12 NOON, 12 PM AND 9:30 PM
     Route: 050
  11. PANTOPRAZOLE [Concomitant]
     Active Substance: PANTOPRAZOLE
     Route: 050
  12. PHENYTOIN SODIUM [Concomitant]
     Active Substance: PHENYTOIN SODIUM
     Dosage: 1 CAPSULE IN MORNING AND 3 CAPSULES MY MOUTH AT NIGHT
     Route: 050
  13. PREGABALIN [Concomitant]
     Active Substance: PREGABALIN
     Route: 050
  14. SERTRALINE HYDROCHLORIDE [Concomitant]
     Active Substance: SERTRALINE HYDROCHLORIDE
     Dosage: 1 TABLET ONCE A DAY MON-WED-FRI
     Route: 050
  15. PREDNISONE [Concomitant]
     Active Substance: PREDNISONE
     Dosage: 1 TABLET ORALLY WITH BREAKFAST EVERY OTHER DAY
     Route: 050
  16. TYMLOS [Concomitant]
     Active Substance: ABALOPARATIDE
     Dosage: 3120 MCG/1.56 ML SOLUTION PEN INJECTOR
     Route: 050
  17. FAMOTIDINE [Concomitant]
     Active Substance: FAMOTIDINE
     Dosage: 1 TABLET AT BED TIME ORALLY
     Route: 050
  18. VITAMIN D3 [Concomitant]
     Active Substance: CHOLECALCIFEROL
     Dosage: 5000 UT
     Route: 050
  19. VITAMIN B12 [Concomitant]
     Active Substance: CYANOCOBALAMIN
     Dosage: CAPSULE ORALLY ONCE A DAY MON-WED-FRI
     Route: 050

REACTIONS (7)
  - Memory impairment [Not Recovered/Not Resolved]
  - White blood cell count decreased [Unknown]
  - Abdominal distension [Recovered/Resolved]
  - Lymphocyte count decreased [Unknown]
  - Flushing [Recovered/Resolved]
  - Pruritus [Recovered/Resolved]
  - Nausea [Recovered/Resolved]

NARRATIVE: CASE EVENT DATE: 20140101
